FAERS Safety Report 25906322 (Version 1)
Quarter: 2025Q4

REPORT INFORMATION
  Report Type: Spontaneous
  Country: US (occurrence: None)
  Receive Date: 20251009
  Receipt Date: 20251009
  Transmission Date: 20260118
  Serious: Yes (Hospitalization)
  Sender: FDA-CTU
  Company Number: None

PATIENT
  Age: 92 Year
  Sex: Male
  Weight: 96.6 kg

DRUGS (1)
  1. EMPAGLIFLOZIN [Suspect]
     Active Substance: EMPAGLIFLOZIN
     Indication: Type 2 diabetes mellitus
     Dosage: FREQUENCY : DAILY;?
     Route: 048
     Dates: start: 20250513, end: 20250929

REACTIONS (4)
  - Urinary tract infection [None]
  - Klebsiella infection [None]
  - Fungaemia [None]
  - Candida infection [None]

NARRATIVE: CASE EVENT DATE: 20250928
